FAERS Safety Report 9036499 (Version 1)
Quarter: 2013Q1

REPORT INFORMATION
  Report Type: Report from Study
  Country: US (occurrence: US)
  Receive Date: 20130129
  Receipt Date: 20130129
  Transmission Date: 20140127
  Serious: No
  Sender: FDA-Public Use
  Company Number: US-ABBOTT-12P-163-0894706-00

PATIENT
  Age: 43 Year
  Sex: Female

DRUGS (17)
  1. HUMIRA 40 MG/0.8 ML PEN [Suspect]
     Indication: RHEUMATOID ARTHRITIS
  2. METHOTREXATE [Concomitant]
     Indication: RHEUMATOID ARTHRITIS
     Dosage: 5 PILLS EVERY FRIDAY
  3. CELEBREX [Concomitant]
     Indication: ARTHRALGIA
     Dosage: 2-3 TIMES WEEKLY
  4. LISINOPRIL [Concomitant]
     Indication: HYPERTENSION
  5. ASPIRIN [Concomitant]
     Indication: CARDIAC DISORDER
  6. VITAMIN D3 [Concomitant]
     Indication: PRODUCT USED FOR UNKNOWN INDICATION
  7. DULCOLAX [Concomitant]
     Indication: CONSTIPATION PROPHYLAXIS
     Dosage: 3 PILLS WEEKLY PRN
  8. FOLIC ACID 1000MCG/VITAMIN B12 500MCG [Concomitant]
     Indication: PRODUCT USED FOR UNKNOWN INDICATION
     Dosage: 1000MCG/500 MCG DAILY
  9. MULTIVITAMIN [Concomitant]
     Indication: PRODUCT USED FOR UNKNOWN INDICATION
  10. OMEGA 3 [Concomitant]
     Indication: PRODUCT USED FOR UNKNOWN INDICATION
  11. SKELAXIN [Concomitant]
     Indication: MUSCLE SPASMS
     Dosage: PRN MAYBE ONCE A MONTH
  12. FIORICET WITH CODEINE [Concomitant]
     Indication: MIGRAINE
     Dosage: 3 TIMES A MONTH PRN
  13. SERAFIN [Concomitant]
     Indication: PREMENSTRUAL SYNDROME
     Dosage: 1-2 TIMES MONTHLY
  14. OTC SINUS MEDICATION [Concomitant]
     Indication: SINUS HEADACHE
     Dosage: TAKES ON A REGULAR BASIS PRN
  15. OTC SINUS MEDICATION [Concomitant]
     Indication: HEADACHE
  16. OTC SINUS MEDICATION [Concomitant]
     Indication: RESPIRATORY TRACT CONGESTION
  17. CALCIUM [Concomitant]
     Indication: MINERAL SUPPLEMENTATION

REACTIONS (5)
  - Mean platelet volume decreased [Unknown]
  - Livedo reticularis [Unknown]
  - Hypoaesthesia [Unknown]
  - Paraesthesia [Unknown]
  - Skin discolouration [Unknown]
